FAERS Safety Report 23437650 (Version 1)
Quarter: 2024Q1

REPORT INFORMATION
  Report Type: Spontaneous
  Country: CN (occurrence: None)
  Receive Date: 20240124
  Receipt Date: 20240124
  Transmission Date: 20240409
  Serious: Yes (Other)
  Sender: FDA-Public Use
  Company Number: CN-ROCHE-3494251

PATIENT
  Age: 53 Year
  Sex: Male
  Weight: 66 kg

DRUGS (3)
  1. ETOPOSIDE [Suspect]
     Active Substance: ETOPOSIDE
     Indication: Colon cancer
     Route: 041
     Dates: start: 20231013
  2. CISPLATIN [Suspect]
     Active Substance: CISPLATIN
     Indication: Colon cancer
     Route: 041
     Dates: start: 20231013
  3. TECENTRIQ [Suspect]
     Active Substance: ATEZOLIZUMAB
     Indication: Colon cancer
     Route: 041
     Dates: start: 20231013

REACTIONS (1)
  - Granulocytopenia [Recovered/Resolved]

NARRATIVE: CASE EVENT DATE: 20231031
